FAERS Safety Report 8768476 (Version 2)
Quarter: 2015Q3

REPORT INFORMATION
  Report Type: Report from Study
  Country: US (occurrence: US)
  Receive Date: 20120905
  Receipt Date: 20150710
  Transmission Date: 20151125
  Serious: Yes (Death)
  Sender: FDA-Public Use
  Company Number: US-ROCHE-1115528

PATIENT
  Age: 60 Year
  Sex: Male

DRUGS (9)
  1. FLOMAX (UNITED STATES) [Concomitant]
     Route: 065
  2. ARANESP [Concomitant]
     Active Substance: DARBEPOETIN ALFA
  3. PROSCAR [Concomitant]
     Active Substance: FINASTERIDE
  4. GEMZAR [Concomitant]
     Active Substance: GEMCITABINE HYDROCHLORIDE
  5. DECADRON [Concomitant]
     Active Substance: DEXAMETHASONE
     Route: 065
  6. TARCEVA [Suspect]
     Active Substance: ERLOTINIB HYDROCHLORIDE
     Indication: COLON CANCER
     Route: 048
  7. XELODA [Suspect]
     Active Substance: CAPECITABINE
     Indication: COLON CANCER
     Route: 065
     Dates: end: 20050428
  8. TARCEVA [Suspect]
     Active Substance: ERLOTINIB HYDROCHLORIDE
     Indication: GALLBLADDER CANCER
  9. XELODA [Suspect]
     Active Substance: CAPECITABINE
     Indication: GALLBLADDER CANCER
     Route: 065
     Dates: start: 20050526

REACTIONS (22)
  - Weight decreased [Unknown]
  - Abdominal pain [Unknown]
  - Headache [Unknown]
  - Pyrexia [Unknown]
  - Neck pain [Unknown]
  - Off label use [Unknown]
  - Dyspnoea [Unknown]
  - Arthralgia [Unknown]
  - Ascites [Unknown]
  - Anaemia [Unknown]
  - Back pain [Unknown]
  - Cough [Unknown]
  - Decreased appetite [Unknown]
  - Chest pain [Unknown]
  - Nausea [Unknown]
  - Vomiting [Unknown]
  - Death [Fatal]
  - Diarrhoea [Unknown]
  - Night sweats [Unknown]
  - Fatigue [Unknown]
  - Dyspepsia [Unknown]
  - Drug ineffective [Unknown]

NARRATIVE: CASE EVENT DATE: 20050719
